FAERS Safety Report 7944453-0 (Version None)
Quarter: 2011Q4

REPORT INFORMATION
  Report Type: 
  Country: None (occurrence: None)
  Receive Date: 20111122
  Receipt Date: 20110801
  Transmission Date: 20120403
  Serious: Yes (Disabling, Other)
  Sender: FDA-Public Use
  Company Number: PHHY2011US44848

PATIENT
  Age: 54 Year
  Sex: Female

DRUGS (15)
  1. OXYCODONE HCL [Concomitant]
  2. WARFARIN SODIUM [Concomitant]
  3. AMITRIPTYLINE HCL [Concomitant]
  4. NEURONTIN [Concomitant]
  5. CRESTOR [Concomitant]
  6. FUROSEMIDE [Concomitant]
  7. GILENYA [Suspect]
     Indication: RELAPSING-REMITTING MULTIPLE SCLEROSIS
     Dosage: 0.5 MG, QD, ORAL, 0.5 MG, QD, ORAL
     Route: 048
     Dates: start: 20110406, end: 20110524
  8. BACLOFEN [Concomitant]
  9. POTASSIUM CHLORIDE [Concomitant]
  10. FENOFIBRATE [Concomitant]
  11. LIPITOR [Concomitant]
  12. METOPROLOL TARTRATE [Concomitant]
  13. APAP (PARACETAMOL) [Concomitant]
  14. OMEPRAZOLE [Concomitant]
  15. SYNTHROID [Concomitant]

REACTIONS (4)
  - RASH [None]
  - DRY MOUTH [None]
  - HERPES ZOSTER [None]
  - PAIN [None]
